FAERS Safety Report 14563937 (Version 1)
Quarter: 2018Q1

REPORT INFORMATION
  Report Type: Spontaneous
  Country: DE (occurrence: DE)
  Receive Date: 20180222
  Receipt Date: 20180222
  Transmission Date: 20180509
  Serious: Yes (Hospitalization)
  Sender: FDA-Public Use
  Company Number: DE-TEVA-2018-DE-859478

PATIENT
  Age: 79 Year
  Sex: Female

DRUGS (27)
  1. CLEMASTINE [Concomitant]
     Active Substance: CLEMASTINE
     Indication: PREMEDICATION
     Dosage: 50 MILLIGRAM DAILY;
     Dates: start: 20171228, end: 20171228
  2. ONDANSETRON [Concomitant]
     Active Substance: ONDANSETRON
     Indication: ANTIEMETIC SUPPORTIVE CARE
     Dosage: 8 MG, AS NEEDED
     Route: 048
     Dates: start: 20171229
  3. CARBOPLATIN. [Suspect]
     Active Substance: CARBOPLATIN
     Dosage: UNK
     Route: 042
     Dates: start: 20171208, end: 20171208
  4. CLEXANE [Concomitant]
     Active Substance: ENOXAPARIN SODIUM
     Indication: PROPHYLAXIS
     Dosage: 40 MILLIGRAM DAILY;
     Route: 058
     Dates: start: 20180103
  5. AVELUMAB [Suspect]
     Active Substance: AVELUMAB
     Dosage: UNK
     Dates: start: 20171229, end: 20171229
  6. RANITIDIN [Concomitant]
     Active Substance: RANITIDINE HYDROCHLORIDE
     Indication: PREMEDICATION
     Dosage: 50 MILLIGRAM DAILY;
     Dates: start: 20171228, end: 20171228
  7. CARVEDILOL. [Concomitant]
     Active Substance: CARVEDILOL
     Indication: CARDIAC FAILURE
     Dosage: 1 DOSAGE FORMS DAILY; 12.5 MG, DAILY (0,5 DF 2X DAY)
     Route: 048
     Dates: start: 1997
  8. PANTOPRAZOLE [Concomitant]
     Active Substance: PANTOPRAZOLE
     Indication: PROPHYLAXIS
     Dosage: 1 (UNK UNIT), AS NEEDED
  9. ATORVASTATIN [Concomitant]
     Active Substance: ATORVASTATIN
     Indication: CARDIAC FAILURE
     Dosage: 50 MG, 0-0-1/2 DAILY
     Dates: start: 1997
  10. ENTRESTO [Concomitant]
     Active Substance: SACUBITRIL\VALSARTAN
     Indication: CARDIAC FAILURE
     Dosage: 49/51 MG, 1/4-0-1/4
     Route: 048
     Dates: start: 201708
  11. AVELUMAB [Suspect]
     Active Substance: AVELUMAB
     Dosage: UNK
     Dates: start: 20171208, end: 20171208
  12. ASS PROTECT [Concomitant]
     Indication: CARDIAC FAILURE
     Dosage: 100 MILLIGRAM DAILY;
     Route: 048
     Dates: start: 1997
  13. DEXAMETHASONE. [Concomitant]
     Active Substance: DEXAMETHASONE
     Indication: PROPHYLAXIS
     Dosage: 16 MILLIGRAM DAILY;
     Route: 048
     Dates: start: 20171229, end: 20171230
  14. PARACETAMOL [Concomitant]
     Active Substance: ACETAMINOPHEN
     Indication: PROPHYLAXIS
     Dosage: 1000 MILLIGRAM DAILY;
     Route: 048
     Dates: start: 20171229, end: 20171230
  15. PERFALGAN [Concomitant]
     Active Substance: ACETAMINOPHEN
     Indication: PREMEDICATION
     Dosage: 1 GRAM DAILY;
     Dates: start: 20171229, end: 20171229
  16. L-THYROXIN [Concomitant]
     Active Substance: LEVOTHYROXINE SODIUM
     Indication: GOITRE
     Dosage: 50 MICROGRAM DAILY;
     Route: 048
     Dates: start: 1997
  17. CARBOPLATIN. [Suspect]
     Active Substance: CARBOPLATIN
     Dosage: UNK
     Route: 042
     Dates: start: 20171228, end: 20171228
  18. DEXAMETHASONE. [Concomitant]
     Active Substance: DEXAMETHASONE
     Indication: PREMEDICATION
     Dosage: 20 MILLIGRAM DAILY;
     Route: 048
     Dates: start: 20171228, end: 20171228
  19. SPIRONOLACTON [Concomitant]
     Active Substance: SPIRONOLACTONE
     Indication: CARDIAC FAILURE
     Dosage: 25 MG, 0-1/2-0
     Route: 048
     Dates: start: 1997
  20. VOMEX [Concomitant]
     Active Substance: DIMENHYDRINATE
     Indication: VOMITING
     Dosage: 1 (UNK UNIT), AS NEEDED
  21. TRAMADOL. [Concomitant]
     Active Substance: TRAMADOL
     Indication: SPINAL DISORDER
     Dosage: 400 MILLIGRAM DAILY;
     Route: 048
     Dates: start: 1997
  22. CARBOPLATIN. [Suspect]
     Active Substance: CARBOPLATIN
     Dosage: UNK
     Route: 042
     Dates: start: 20171116, end: 20171116
  23. PACLITAXEL. [Suspect]
     Active Substance: PACLITAXEL
     Dosage: UNK
     Route: 042
     Dates: start: 20171228, end: 20171228
  24. PACLITAXEL. [Suspect]
     Active Substance: PACLITAXEL
     Dosage: UNK
     Route: 042
     Dates: start: 20171207, end: 20171207
  25. AVELUMAB [Suspect]
     Active Substance: AVELUMAB
     Dosage: UNK
     Dates: start: 20171117, end: 20171117
  26. EMEND [Concomitant]
     Active Substance: APREPITANT
     Indication: PROPHYLAXIS
     Dosage: UNK MG, 1X/DAY
     Route: 048
     Dates: start: 20171229, end: 20171230
  27. PACLITAXEL. [Suspect]
     Active Substance: PACLITAXEL
     Dosage: UNK
     Route: 042
     Dates: start: 20171116, end: 20171116

REACTIONS (2)
  - Decreased appetite [Recovering/Resolving]
  - Fatigue [Recovering/Resolving]

NARRATIVE: CASE EVENT DATE: 201712
